FAERS Safety Report 14903477 (Version 2)
Quarter: 2018Q2

REPORT INFORMATION
  Report Type: Report from Study
  Country: US (occurrence: US)
  Receive Date: 20180516
  Receipt Date: 20180524
  Transmission Date: 20180711
  Serious: Yes (Hospitalization)
  Sender: FDA-Public Use
  Company Number: US-CELGENEUS-USA-20180504188

PATIENT
  Age: 65 Year
  Sex: Male

DRUGS (10)
  1. ABRAXANE [Suspect]
     Active Substance: PACLITAXEL
     Dosage: 102.0 MG/M2
     Route: 042
     Dates: start: 20180411, end: 20180411
  2. ABRAXANE [Suspect]
     Active Substance: PACLITAXEL
     Dosage: 102.0 MG/M2
     Route: 042
     Dates: start: 20180314, end: 20180314
  3. ABRAXANE [Suspect]
     Active Substance: PACLITAXEL
     Dosage: 102.0 MG/M2
     Route: 042
     Dates: start: 20180328, end: 20180328
  4. ABRAXANE [Suspect]
     Active Substance: PACLITAXEL
     Indication: NON-SMALL CELL LUNG CANCER
     Route: 042
     Dates: start: 20180228, end: 20180228
  5. CARBOPLATIN. [Concomitant]
     Active Substance: CARBOPLATIN
     Indication: NON-SMALL CELL LUNG CANCER
     Dosage: 6.0 AUC
     Route: 042
     Dates: start: 20180228, end: 20180228
  6. CARBOPLATIN. [Concomitant]
     Active Substance: CARBOPLATIN
     Dosage: 6.0 AUC
     Route: 042
     Dates: start: 20180321, end: 20180321
  7. ABRAXANE [Suspect]
     Active Substance: PACLITAXEL
     Route: 042
     Dates: start: 20180307, end: 20180307
  8. ABRAXANE [Suspect]
     Active Substance: PACLITAXEL
     Dosage: 102.0 MG/M2
     Route: 042
     Dates: start: 20180321, end: 20180321
  9. ABRAXANE [Suspect]
     Active Substance: PACLITAXEL
     Dosage: 102.0 MG/M2
     Route: 042
     Dates: start: 20180418, end: 20180418
  10. CARBOPLATIN. [Concomitant]
     Active Substance: CARBOPLATIN
     Dosage: 6.0 AUC
     Route: 042
     Dates: start: 20180411, end: 20180411

REACTIONS (1)
  - Chronic obstructive pulmonary disease [Recovered/Resolved]

NARRATIVE: CASE EVENT DATE: 20180502
